FAERS Safety Report 16890322 (Version 2)
Quarter: 2019Q4

REPORT INFORMATION
  Report Type: Report from Study
  Country: HU (occurrence: HU)
  Receive Date: 20191007
  Receipt Date: 20191010
  Transmission Date: 20200122
  Serious: Yes (Other)
  Sender: FDA-Public Use
  Company Number: HU-GLAXOSMITHKLINE-HU2019EME175737

PATIENT

DRUGS (1)
  1. MEPOLIZUMAB [Suspect]
     Active Substance: MEPOLIZUMAB
     Indication: ASTHMA
     Dosage: UNK
     Dates: start: 20190919

REACTIONS (11)
  - Dyspnoea [Unknown]
  - Cough [Unknown]
  - Chills [Unknown]
  - Haemoptysis [Unknown]
  - Pyrexia [Unknown]
  - Pneumonia [Unknown]
  - Fatigue [Unknown]
  - Bedridden [Unknown]
  - Pain in extremity [Unknown]
  - Breath sounds abnormal [Unknown]
  - Hyperhidrosis [Unknown]

NARRATIVE: CASE EVENT DATE: 20190923
